FAERS Safety Report 12622009 (Version 1)
Quarter: 2016Q3

REPORT INFORMATION
  Report Type: Spontaneous
  Country: US (occurrence: US)
  Receive Date: 20160804
  Receipt Date: 20160804
  Transmission Date: 20161109
  Serious: Yes (Hospitalization, Other)
  Sender: FDA-Public Use
  Company Number: US-VIIV HEALTHCARE LIMITED-US2016GSK111880

PATIENT
  Age: 75 Year
  Sex: Male

DRUGS (1)
  1. ZIAGEN [Suspect]
     Active Substance: ABACAVIR SULFATE
     Indication: HIV INFECTION
     Dosage: DOSE/STRENGTH 300 MG
     Dates: start: 201303

REACTIONS (5)
  - Hospitalisation [Recovered/Resolved]
  - Fall [Unknown]
  - Hypotension [Unknown]
  - Ill-defined disorder [Unknown]
  - Rehabilitation therapy [Unknown]

NARRATIVE: CASE EVENT DATE: 201511
